FAERS Safety Report 7596924-7 (Version None)
Quarter: 2011Q3

REPORT INFORMATION
  Report Type: 
  Country: None (occurrence: None)
  Receive Date: 20110708
  Receipt Date: 20110701
  Transmission Date: 20111222
  Serious: Yes (Hospitalization, Other)
  Sender: FDA-Public Use
  Company Number: IT-PFIZER INC-2011150144

PATIENT
  Age: 73 Year
  Sex: Female

DRUGS (6)
  1. ASPIRIN [Concomitant]
     Dosage: UNK
     Dates: start: 20080101
  2. BUDESONIDE/FORMOTEROL FUMARATE [Concomitant]
     Dosage: UNK
     Dates: start: 20080101
  3. CORDARONE [Suspect]
     Indication: ARRHYTHMIA
     Dosage: 200 MG, DAILY
     Route: 048
     Dates: start: 20080401, end: 20110430
  4. IRBESARTAN + HYDROCHLOROTHIAZIDE [Concomitant]
     Dosage: UNK
     Dates: start: 20080101
  5. LEVOTHYROXINE SODIUM [Concomitant]
     Dosage: UNK
     Dates: start: 20080101
  6. BARNIDIPINE HYDROCHLORIDE [Concomitant]
     Dosage: UNK
     Dates: start: 20080101

REACTIONS (2)
  - BRONCHITIS [None]
  - INTERSTITIAL LUNG DISEASE [None]
